FAERS Safety Report 17833404 (Version 2)
Quarter: 2020Q2

REPORT INFORMATION
  Report Type: Spontaneous
  Country: US (occurrence: US)
  Receive Date: 20200528
  Receipt Date: 20200529
  Transmission Date: 20200714
  Serious: Yes (Hospitalization, Other)
  Sender: FDA-Public Use
  Company Number: US-ASTRAZENECA-2020SE68276

PATIENT
  Sex: Female

DRUGS (1)
  1. TAGRISSO [Suspect]
     Active Substance: OSIMERTINIB
     Indication: NON-SMALL CELL LUNG CANCER METASTATIC
     Route: 048
     Dates: end: 20200512

REACTIONS (10)
  - Neutropenia [Unknown]
  - Anaemia [Unknown]
  - Hepatic enzyme increased [Not Recovered/Not Resolved]
  - Hepatic steatosis [Unknown]
  - Pyrexia [Unknown]
  - Immune system disorder [Unknown]
  - Diarrhoea [Unknown]
  - Deep vein thrombosis [Unknown]
  - Pulmonary embolism [Unknown]
  - Thrombocytopenia [Not Recovered/Not Resolved]

NARRATIVE: CASE EVENT DATE: 20200522
